FAERS Safety Report 23224302 (Version 2)
Quarter: 2023Q4

REPORT INFORMATION
  Report Type: Spontaneous
  Country: US (occurrence: US)
  Receive Date: 20231124
  Receipt Date: 20231129
  Transmission Date: 20240110
  Serious: Yes (Hospitalization)
  Sender: FDA-Public Use
  Company Number: US-PROCTER_AND_GAMBLE-PH23010457

PATIENT
  Age: 77 Year
  Sex: Female

DRUGS (2)
  1. CALCIUM CARBONATE [Suspect]
     Active Substance: CALCIUM CARBONATE
     Dosage: MORE THAN EIGHT TABLETS DAILY
     Route: 048
  2. HYDROCHLOROTHIAZIDE [Concomitant]
     Active Substance: HYDROCHLOROTHIAZIDE
     Dosage: UNK

REACTIONS (8)
  - Milk-alkali syndrome [Unknown]
  - Acute kidney injury [Unknown]
  - Dysarthria [Unknown]
  - Hypocalcaemia [Recovered/Resolved]
  - Hypercalcaemia [Recovered/Resolved]
  - Nausea [Unknown]
  - Vomiting [Unknown]
  - Blood 25-hydroxycholecalciferol decreased [Unknown]
